FAERS Safety Report 12247777 (Version 2)
Quarter: 2016Q2

REPORT INFORMATION
  Report Type: Report from Study
  Country: BE (occurrence: BE)
  Receive Date: 20160408
  Receipt Date: 20160414
  Transmission Date: 20160815
  Serious: Yes (Hospitalization, Other)
  Sender: FDA-Public Use
  Company Number: BE-AMGEN-BELCT2016042907

PATIENT
  Age: 70 Year
  Sex: Male

DRUGS (21)
  1. CARFILZOMIB [Suspect]
     Active Substance: CARFILZOMIB
     Indication: PLASMA CELL MYELOMA
     Dosage: 59.62 MG, PER CHEMO REGIM
     Route: 042
     Dates: start: 20151207
  2. TAZOCIN [Concomitant]
     Active Substance: PIPERACILLIN SODIUM\TAZOBACTAM SODIUM
  3. MERONEM [Concomitant]
     Active Substance: MEROPENEM
     Dosage: UNK
  4. AMUKIN [Concomitant]
     Active Substance: AMIKACIN SULFATE
     Dosage: UNK
     Route: 042
     Dates: start: 20160313, end: 20160315
  5. ASAFLOW [Concomitant]
     Active Substance: ASPIRIN
     Dosage: UNK
     Dates: start: 20160320
  6. BRONCHOSEDAL [Concomitant]
     Active Substance: DEXTROMETHORPHAN HYDROBROMIDE
     Dosage: UNK
     Dates: start: 20160314, end: 20160316
  7. MULTIGAM [Concomitant]
     Dosage: UNK
     Route: 042
  8. PRAREDUCT [Concomitant]
     Dosage: UNK
     Dates: start: 20140123
  9. AUGMENTIN [Concomitant]
     Active Substance: AMOXICILLIN\CLAVULANATE POTASSIUM
     Dosage: UNK
     Route: 048
     Dates: start: 20160121
  10. PERFUSALGAN [Concomitant]
     Active Substance: ACETAMINOPHEN
     Dosage: UNK
  11. FLUCONAZOL [Concomitant]
     Active Substance: FLUCONAZOLE
     Dosage: UNK
     Dates: start: 20151207
  12. CIPROXINE                          /00697201/ [Concomitant]
     Dosage: UNK
     Dates: start: 20160311
  13. SIROXYL [Concomitant]
     Dosage: UNK
     Dates: start: 20160316, end: 20160318
  14. AMLODIPINE [Concomitant]
     Active Substance: AMLODIPINE BESYLATE
     Dosage: 10 MG, UNK
     Route: 048
     Dates: start: 20160229
  15. DEXAMETHASONE. [Suspect]
     Active Substance: DEXAMETHASONE
     Indication: PLASMA CELL MYELOMA
     Dosage: 40 MG, PER CHEMO REGIM
     Route: 048
     Dates: start: 20151207
  16. ZOLPIDEM [Concomitant]
     Active Substance: ZOLPIDEM\ZOLPIDEM TARTRATE
     Dosage: UNK
  17. DAFALGAN [Concomitant]
     Active Substance: ACETAMINOPHEN
     Dosage: UNK
     Dates: start: 20160313, end: 20160317
  18. NASONEX [Concomitant]
     Active Substance: MOMETASONE FUROATE
     Dosage: UNK
     Dates: start: 20160316
  19. ACICLOVIR [Concomitant]
     Active Substance: ACYCLOVIR
     Dosage: UNK
  20. AUGMENTIN [Concomitant]
     Active Substance: AMOXICILLIN\CLAVULANATE POTASSIUM
     Dosage: UNK
  21. FUROSEMIDE. [Concomitant]
     Active Substance: FUROSEMIDE

REACTIONS (1)
  - Catheter site vesicles [Recovered/Resolved]

NARRATIVE: CASE EVENT DATE: 20160402
